FAERS Safety Report 7193314-6 (Version None)
Quarter: 2010Q4

REPORT INFORMATION
  Report Type: 
  Country: None (occurrence: None)
  Receive Date: 20101124
  Receipt Date: 20100804
  Transmission Date: 20110411
  Serious: Yes (Other)
  Sender: FDA-Public Use
  Company Number: AUR-APL-2010-02034

PATIENT
  Sex: Male

DRUGS (1)
  1. PENICILLIN V POTASSIUM [Suspect]
     Indication: INFECTION
     Dosage: 500MG, ORAL
     Route: 048
     Dates: start: 20100701, end: 20100802

REACTIONS (7)
  - ASTHENIA [None]
  - DIARRHOEA [None]
  - EATING DISORDER [None]
  - FAECES DISCOLOURED [None]
  - INSOMNIA [None]
  - MALAISE [None]
  - TONGUE DISORDER [None]
